FAERS Safety Report 17397240 (Version 3)
Quarter: 2020Q1

REPORT INFORMATION
  Report Type: Spontaneous
  Country: AR (occurrence: AR)
  Receive Date: 20200210
  Receipt Date: 20200324
  Transmission Date: 20200409
  Serious: Yes (Other)
  Sender: FDA-Public Use
  Company Number: AR-MYLANLABS-2019M1053942

PATIENT
  Age: 51 Year
  Sex: Female

DRUGS (1)
  1. LAPENAX [Suspect]
     Active Substance: CLOZAPINE
     Indication: PSYCHOTIC DISORDER
     Dosage: UNK
     Dates: start: 20171215

REACTIONS (9)
  - Leukocytosis [Recovered/Resolved]
  - Leukopenia [Recovered/Resolved]
  - Mean cell volume increased [Recovered/Resolved]
  - Haematocrit increased [Not Recovered/Not Resolved]
  - Monocyte count decreased [Unknown]
  - Neutropenia [Recovered/Resolved]
  - Haemoglobin increased [Recovered/Resolved]
  - Neutrophil count increased [Recovered/Resolved]
  - Mean cell haemoglobin concentration decreased [Recovering/Resolving]

NARRATIVE: CASE EVENT DATE: 20190522
